FAERS Safety Report 6601830-8 (Version None)
Quarter: 2010Q1

REPORT INFORMATION
  Report Type: 
  Country: None (occurrence: None)
  Receive Date: 20100218
  Receipt Date: 20100127
  Transmission Date: 20100710
  Serious: Yes (Other)
  Sender: FDA-Public Use
  Company Number: 2010AC000092

PATIENT
  Age: 71 Year
  Sex: Female

DRUGS (30)
  1. DIGOXIN [Suspect]
     Indication: HEART RATE DECREASED
     Dosage: 0.125 MG; QD; PO
     Route: 048
     Dates: start: 20041201
  2. DIGOXIN [Suspect]
     Dosage: .125 MG; QD; PO
     Route: 048
     Dates: start: 20040426
  3. MEDROL [Concomitant]
  4. FUROSEMIDE [Concomitant]
  5. POTASSIUM CHLORIDE [Concomitant]
  6. COREG [Concomitant]
  7. AUGMENTIN [Concomitant]
  8. SIMVASTATIN [Concomitant]
  9. PENICILLIN [Concomitant]
  10. METOPROLOL [Concomitant]
  11. ALPRAZOLAM [Concomitant]
  12. GABAPENTIN [Concomitant]
  13. MINITRAN [Concomitant]
  14. CODICLEAR [Concomitant]
  15. NITROGLYCERIN [Concomitant]
  16. METFORMIN HYDROCHLORIDE [Concomitant]
  17. HYDROCORT [Concomitant]
  18. TRAMADOL HCL [Concomitant]
  19. PLAVIX [Concomitant]
  20. BENZONATATE [Concomitant]
  21. AZITHROMYC [Concomitant]
  22. PREDNISONE [Concomitant]
  23. LAVAQUIN [Concomitant]
  24. MUCINEX [Concomitant]
  25. CEFUROXIME [Concomitant]
  26. FLAGYL [Concomitant]
  27. PHENERGAN HCL [Concomitant]
  28. ZITHROMAX [Concomitant]
  29. DIOVAN [Concomitant]
  30. LISINOPRIIL [Concomitant]

REACTIONS (2)
  - MULTIPLE INJURIES [None]
  - MYOCARDIAL INFARCTION [None]
